FAERS Safety Report 13653826 (Version 3)
Quarter: 2017Q2

REPORT INFORMATION
  Report Type: Spontaneous
  Country: None (occurrence: US)
  Receive Date: 20170614
  Receipt Date: 20170619
  Transmission Date: 20170830
  Serious: No
  Sender: FDA-Public Use
  Company Number: US-XTTRIUM LABORATORIES, INC-2022034

PATIENT
  Sex: Male

DRUGS (1)
  1. SCRUB CARE EXIDINE -4 CHG [Suspect]
     Active Substance: CHLORHEXIDINE GLUCONATE
     Indication: RASH GENERALISED
     Route: 061
     Dates: start: 20160721, end: 20160722

REACTIONS (1)
  - Local swelling [Recovering/Resolving]

NARRATIVE: CASE EVENT DATE: 20160721
